FAERS Safety Report 8263811-0 (Version None)
Quarter: 2012Q2

REPORT INFORMATION
  Report Type: 
  Country: None (occurrence: None)
  Receive Date: 20120405
  Receipt Date: 20120403
  Transmission Date: 20120825
  Serious: Yes (Hospitalization, Other)
  Sender: FDA-Public Use
  Company Number: TR-PFIZER INC-2012084569

PATIENT
  Sex: Female

DRUGS (2)
  1. EFFEXOR XR [Concomitant]
     Dosage: UNK
  2. ZIPRASIDONE HYDROCHLORIDE [Suspect]
     Dosage: UNK
     Route: 048
     Dates: start: 20120101

REACTIONS (7)
  - OVERDOSE [None]
  - TRANSAMINASES INCREASED [None]
  - ALANINE AMINOTRANSFERASE INCREASED [None]
  - SUICIDE ATTEMPT [None]
  - GAMMA-GLUTAMYLTRANSFERASE INCREASED [None]
  - EPILEPSY [None]
  - ASPARTATE AMINOTRANSFERASE INCREASED [None]
